FAERS Safety Report 4979980-1 (Version None)
Quarter: 2006Q2

REPORT INFORMATION
  Report Type: 
  Country: None (occurrence: None)
  Receive Date: 20060421
  Receipt Date: 20051114
  Transmission Date: 20061013
  Serious: No
  Sender: FDA-Public Use
  Company Number: US-MERCK-0511USA02631

PATIENT
  Age: 42 Year
  Sex: Male
  Weight: 83 kg

DRUGS (5)
  1. VIOXX [Suspect]
     Indication: BONE DISORDER
     Route: 048
     Dates: start: 20010801
  2. AMOXICILLIN [Concomitant]
     Route: 065
  3. DOCUSATE CALCIUM [Concomitant]
     Route: 065
  4. PERCOCET [Concomitant]
     Route: 065
  5. COUMADIN [Concomitant]
     Route: 065

REACTIONS (10)
  - ANHEDONIA [None]
  - ANXIETY [None]
  - CARDIAC FAILURE CONGESTIVE [None]
  - CARDIOVASCULAR DISORDER [None]
  - CEREBROVASCULAR ACCIDENT [None]
  - DEEP VEIN THROMBOSIS [None]
  - MYOCARDIAL INFARCTION [None]
  - PULMONARY EMBOLISM [None]
  - RENAL FAILURE [None]
  - THROMBOSIS [None]
